FAERS Safety Report 24232668 (Version 1)
Quarter: 2024Q3

REPORT INFORMATION
  Report Type: Spontaneous
  Country: US (occurrence: None)
  Receive Date: 20240820
  Receipt Date: 20240820
  Transmission Date: 20241016
  Serious: Yes (Disabling, Other)
  Sender: Public
  Company Number: None

PATIENT
  Age: 29 Year
  Sex: Male
  Weight: 72 kg

DRUGS (6)
  1. DESCOVY [Suspect]
     Active Substance: EMTRICITABINE\TENOFOVIR ALAFENAMIDE FUMARATE
     Indication: Prophylaxis against HIV infection
     Dosage: OTHER QUANTITY : 1 TABLET(S);?
     Route: 048
     Dates: start: 20240121, end: 20240130
  2. TACROLIMUS [Concomitant]
     Active Substance: TACROLIMUS
  3. PIMECROLIMUS [Concomitant]
     Active Substance: PIMECROLIMUS
  4. CLOBETASOL [Concomitant]
     Active Substance: CLOBETASOL
  5. FOLIC ACID [Concomitant]
     Active Substance: FOLIC ACID
  6. COAL TAR [Concomitant]
     Active Substance: COAL TAR

REACTIONS (3)
  - Anal rash [None]
  - Psoriasis [None]
  - Therapy cessation [None]

NARRATIVE: CASE EVENT DATE: 20240130
